FAERS Safety Report 16669179 (Version 1)
Quarter: 2019Q3

REPORT INFORMATION
  Report Type: Spontaneous
  Country: US (occurrence: US)
  Receive Date: 20190619
  Receipt Date: 20190619
  Transmission Date: 20191004
  Serious: No
  Sender: FDA-Public Use
  Company Number: None

PATIENT
  Age: 57 Year
  Sex: Female
  Weight: 95.25 kg

DRUGS (8)
  1. FAMOTIDINE. [Concomitant]
     Active Substance: FAMOTIDINE
  2. BACTRIM [Concomitant]
     Active Substance: SULFAMETHOXAZOLE\TRIMETHOPRIM
  3. MYCOPHENOLATE [Suspect]
     Active Substance: MYCOPHENOLIC ACID
  4. CYCLOSPORINE. [Suspect]
     Active Substance: CYCLOSPORINE
  5. BABY ASPRIN [Concomitant]
     Active Substance: ASPIRIN
  6. PREDNISONE. [Concomitant]
     Active Substance: PREDNISONE
  7. CYCLOSPORINE. [Suspect]
     Active Substance: CYCLOSPORINE
  8. IRON PILL [Concomitant]
     Active Substance: IRON

REACTIONS (4)
  - Dizziness [None]
  - Palpitations [None]
  - Balance disorder [None]
  - Ill-defined disorder [None]

NARRATIVE: CASE EVENT DATE: 201812
